FAERS Safety Report 8525724-6 (Version None)
Quarter: 2012Q3

REPORT INFORMATION
  Report Type: 
  Country: None (occurrence: None)
  Receive Date: 20120720
  Receipt Date: 20120709
  Transmission Date: 20120928
  Serious: Yes (Hospitalization, Disabling, Other)
  Sender: FDA-Public Use
  Company Number: US-009507513-1201USA01460

PATIENT

DRUGS (7)
  1. BONIVA [Suspect]
     Indication: OSTEOPENIA
  2. BONIVA [Suspect]
     Indication: OSTEOPOROSIS
     Dosage: 150 MG, UNK
     Route: 048
     Dates: start: 20060301, end: 20100306
  3. GLUCOPHAGE [Concomitant]
     Dates: start: 20000101
  4. FOSAMAX [Suspect]
     Indication: OSTEOPOROSIS
     Dosage: 70 MG, UNK
     Route: 048
     Dates: start: 20010606, end: 20100115
  5. FOSAMAX [Suspect]
     Dosage: 150 MG, UNK
     Route: 048
     Dates: start: 20060301, end: 20061201
  6. HORMONES (UNSPECIFIED) [Concomitant]
     Dates: start: 19780101, end: 20050101
  7. FOSAMAX [Suspect]
     Dosage: 70 MG, UNK
     Route: 048
     Dates: start: 20080401, end: 20100101

REACTIONS (30)
  - GASTRIC DISORDER [None]
  - SYNOVIAL CYST [None]
  - OVARIAN NEOPLASM [None]
  - POOR VENOUS ACCESS [None]
  - LOW TURNOVER OSTEOPATHY [None]
  - BLOOD CHOLESTEROL INCREASED [None]
  - ARTHRALGIA [None]
  - GASTROOESOPHAGEAL REFLUX DISEASE [None]
  - OVERDOSE [None]
  - APPENDIX DISORDER [None]
  - ADVERSE EVENT [None]
  - OSTEOARTHRITIS [None]
  - PAIN IN EXTREMITY [None]
  - GALLBLADDER DISORDER [None]
  - ATRIAL FLUTTER [None]
  - SPINAL OSTEOARTHRITIS [None]
  - DEEP VEIN THROMBOSIS [None]
  - RIB FRACTURE [None]
  - ATYPICAL FEMUR FRACTURE [None]
  - IMPAIRED HEALING [None]
  - HYPERLIPIDAEMIA [None]
  - COLONIC POLYP [None]
  - MUSCULOSKELETAL PAIN [None]
  - FOOT FRACTURE [None]
  - FALL [None]
  - BREAST CANCER [None]
  - VITAMIN D DEFICIENCY [None]
  - VENOUS INSUFFICIENCY [None]
  - UTERINE DISORDER [None]
  - EMBOLISM [None]
